FAERS Safety Report 9636804 (Version 1)
Quarter: 2013Q4

REPORT INFORMATION
  Report Type: Spontaneous
  Country: US (occurrence: US)
  Receive Date: 20131022
  Receipt Date: 20131022
  Transmission Date: 20140711
  Serious: Yes (Other)
  Sender: FDA-Public Use
  Company Number: US-JNJFOC-20131004900

PATIENT
  Sex: 0

DRUGS (10)
  1. TYLENOL UNSPECIFIED [Suspect]
     Route: 064
  2. TYLENOL UNSPECIFIED [Suspect]
     Indication: FOETAL EXPOSURE DURING PREGNANCY
     Route: 064
  3. IBUPROFEN [Suspect]
     Route: 064
  4. IBUPROFEN [Suspect]
     Indication: FOETAL EXPOSURE DURING PREGNANCY
     Route: 064
  5. DARVOCET [Suspect]
     Indication: FOETAL EXPOSURE DURING PREGNANCY
     Route: 064
  6. EXCEDRIN MIGRAINE [Suspect]
     Indication: PAIN
     Route: 065
  7. EXCEDRIN MIGRAINE [Suspect]
     Indication: MIGRAINE
     Route: 065
  8. EXCEDRIN EXTRA STRENGTH [Suspect]
     Indication: FOETAL EXPOSURE DURING PREGNANCY
     Route: 064
  9. INSULIN [Suspect]
     Indication: FOETAL EXPOSURE DURING PREGNANCY
     Route: 064
  10. INSULIN [Suspect]
     Indication: FOETAL EXPOSURE DURING PREGNANCY
     Route: 064

REACTIONS (2)
  - Premature baby [Unknown]
  - Foetal exposure during pregnancy [Unknown]
